FAERS Safety Report 11893002 (Version 2)
Quarter: 2016Q1

REPORT INFORMATION
  Report Type: Report from Study
  Country: RU (occurrence: RU)
  Receive Date: 20160106
  Receipt Date: 20160122
  Transmission Date: 20160526
  Serious: Yes (Other)
  Sender: FDA-Public Use
  Company Number: RU-JNJFOC-20151223630

PATIENT
  Age: 47 Year
  Sex: Male
  Weight: 78 kg

DRUGS (2)
  1. IBRUTINIB [Suspect]
     Active Substance: IBRUTINIB
     Indication: CHRONIC LYMPHOCYTIC LEUKAEMIA
     Dosage: 2 PILLS PER DAY
     Route: 048
     Dates: start: 20151120, end: 20151214
  2. IBRUTINIB [Suspect]
     Active Substance: IBRUTINIB
     Indication: CHRONIC LYMPHOCYTIC LEUKAEMIA
     Route: 048
     Dates: start: 20151230

REACTIONS (2)
  - Evans syndrome [Unknown]
  - Infection [Unknown]

NARRATIVE: CASE EVENT DATE: 20151214
